FAERS Safety Report 6144408-5 (Version None)
Quarter: 2009Q2

REPORT INFORMATION
  Report Type: 
  Country: None (occurrence: None)
  Receive Date: 20090401
  Receipt Date: 20081217
  Transmission Date: 20091009
  Serious: Yes (Other)
  Sender: FDA-Public Use
  Company Number: 182739USA

PATIENT
  Sex: Male

DRUGS (2)
  1. SIMVASTATIN [Suspect]
  2. CYCLOSPORINE [Concomitant]

REACTIONS (2)
  - GAIT DISTURBANCE [None]
  - RHABDOMYOLYSIS [None]
